FAERS Safety Report 24807351 (Version 4)
Quarter: 2025Q1

REPORT INFORMATION
  Report Type: Spontaneous
  Country: ES (occurrence: ES)
  Receive Date: 20250105
  Receipt Date: 20250204
  Transmission Date: 20250409
  Serious: Yes (Other)
  Sender: AUROBINDO
  Company Number: ES-OTSUKA-2024_031849

PATIENT
  Age: 54 Year
  Sex: Female

DRUGS (3)
  1. ARIPIPRAZOLE [Interacting]
     Active Substance: ARIPIPRAZOLE
     Indication: Hyperprolactinaemia
     Dosage: 10 MILLIGRAM, ONCE A DAY
     Route: 065
  2. ARIPIPRAZOLE [Interacting]
     Active Substance: ARIPIPRAZOLE
     Indication: Schizophrenia
  3. AMISULPRIDE [Interacting]
     Active Substance: AMISULPRIDE
     Indication: Schizophrenia
     Dosage: 400 MILLIGRAM, ONCE A DAY
     Route: 065

REACTIONS (11)
  - Breast pain [Unknown]
  - Condition aggravated [Recovering/Resolving]
  - Disease recurrence [Unknown]
  - Hyperprolactinaemia [Recovering/Resolving]
  - Psychotic disorder [Recovered/Resolved]
  - Psychotic symptom [Recovering/Resolving]
  - Drug interaction [Recovered/Resolved]
  - Sleep disorder [Recovering/Resolving]
  - Anxiety [Recovering/Resolving]
  - Product use in unapproved indication [Unknown]
  - Off label use [Unknown]
